FAERS Safety Report 25962647 (Version 1)
Quarter: 2025Q4

REPORT INFORMATION
  Report Type: Spontaneous
  Country: US (occurrence: US)
  Receive Date: 20251027
  Receipt Date: 20251027
  Transmission Date: 20260117
  Serious: No
  Sender: ROCHE
  Company Number: US-ROCHE-10000416597

PATIENT
  Sex: Female

DRUGS (3)
  1. OCREVUS [Suspect]
     Active Substance: OCRELIZUMAB
     Indication: Multiple sclerosis
     Route: 042
  2. UBLITUXIMAB [Concomitant]
     Active Substance: UBLITUXIMAB
     Indication: Multiple sclerosis
     Route: 042
     Dates: start: 20241017, end: 20241017
  3. UBLITUXIMAB [Concomitant]
     Active Substance: UBLITUXIMAB
     Route: 042
     Dates: start: 20250407, end: 20250407

REACTIONS (1)
  - Immunoglobulins decreased [Unknown]
